FAERS Safety Report 6545977-3 (Version None)
Quarter: 2010Q1

REPORT INFORMATION
  Report Type: 
  Country: None (occurrence: None)
  Receive Date: 20100121
  Receipt Date: 20100114
  Transmission Date: 20100710
  Serious: Yes (Hospitalization, Other)
  Sender: FDA-Public Use
  Company Number: KR-ABBOTT-10P-090-0619607-00

PATIENT
  Sex: Female
  Weight: 64.2 kg

DRUGS (16)
  1. HUMIRA [Suspect]
     Indication: RHEUMATOID ARTHRITIS
     Dates: start: 20090731, end: 20091106
  2. CP-690,550;ADALIMUMAB;METHOTREXATE;PLACE(PLACEBO) [Suspect]
     Indication: RHEUMATOID ARTHRITIS
     Route: 048
     Dates: start: 20090731, end: 20091116
  3. METHOTREXATE [Suspect]
     Indication: RHEUMATOID ARTHRITIS
     Dates: start: 20060101, end: 20091116
  4. FAZIDONE [Suspect]
     Indication: DRUG USE FOR UNKNOWN INDICATION
     Route: 042
     Dates: start: 20091021, end: 20091028
  5. AVELOX [Suspect]
     Indication: DRUG USE FOR UNKNOWN INDICATION
     Route: 042
     Dates: start: 20091121, end: 20091123
  6. AMBISOME [Suspect]
     Indication: DRUG USE FOR UNKNOWN INDICATION
     Dates: start: 20091122, end: 20091125
  7. METRONIDAZOLE [Suspect]
     Indication: DRUG USE FOR UNKNOWN INDICATION
     Dates: start: 20091122, end: 20091125
  8. MAXIPIME [Suspect]
     Indication: DRUG USE FOR UNKNOWN INDICATION
     Dates: start: 20091122, end: 20091125
  9. VANCOMYCIN [Suspect]
     Indication: DRUG USE FOR UNKNOWN INDICATION
     Dates: start: 20091122, end: 20091125
  10. TAZOCIN [Suspect]
     Indication: SKIN LESION
     Route: 042
     Dates: start: 20091116, end: 20091120
  11. CELECOXIB [Concomitant]
     Indication: DRUG USE FOR UNKNOWN INDICATION
     Dates: start: 20060415, end: 20091116
  12. PREDNISOLONE [Concomitant]
     Indication: DRUG USE FOR UNKNOWN INDICATION
     Dates: start: 20080401, end: 20091116
  13. DIAZEPAM [Concomitant]
     Indication: DRUG USE FOR UNKNOWN INDICATION
     Dates: start: 20090130
  14. OMEPRAZOLE [Concomitant]
     Indication: DRUG USE FOR UNKNOWN INDICATION
     Dates: start: 20080829
  15. FOLATE [Concomitant]
     Indication: DRUG USE FOR UNKNOWN INDICATION
     Dates: start: 20090205
  16. CEFAZEDONE SODIUM [Concomitant]
     Indication: DRUG USE FOR UNKNOWN INDICATION
     Dates: start: 20091021, end: 20091028

REACTIONS (9)
  - DYSPNOEA EXERTIONAL [None]
  - FEMUR FRACTURE [None]
  - HAEMATURIA [None]
  - IGA NEPHROPATHY [None]
  - LEUKOPENIA [None]
  - ORAL HERPES [None]
  - PANCYTOPENIA [None]
  - THROMBOCYTOPENIA [None]
  - TOXIC EPIDERMAL NECROLYSIS [None]
